FAERS Safety Report 6552383-4 (Version None)
Quarter: 2010Q1

REPORT INFORMATION
  Report Type: 
  Country: None (occurrence: None)
  Receive Date: 20100126
  Receipt Date: 20100119
  Transmission Date: 20100710
  Serious: Yes (Other)
  Sender: FDA-Public Use
  Company Number: DE-PFIZER INC-2009288876

PATIENT
  Age: 57 Year
  Sex: Male
  Weight: 79.819 kg

DRUGS (4)
  1. SORTIS [Suspect]
     Indication: ARTERIOSCLEROSIS
     Dosage: 20 MG, 1X/DAY
     Route: 048
     Dates: start: 20090220, end: 20090928
  2. SORTIS [Suspect]
     Indication: HYPERLIPIDAEMIA
  3. KARVEA [Concomitant]
     Indication: HYPERTENSION
     Dosage: UNK
  4. ASPIRIN [Concomitant]
     Dosage: UNK

REACTIONS (4)
  - BLOOD CREATINE PHOSPHOKINASE INCREASED [None]
  - MUSCLE ATROPHY [None]
  - MYALGIA [None]
  - NEURITIS [None]
